FAERS Safety Report 24789153 (Version 2)
Quarter: 2025Q1

REPORT INFORMATION
  Report Type: Spontaneous
  Country: DE (occurrence: DE)
  Receive Date: 20241230
  Receipt Date: 20250109
  Transmission Date: 20250408
  Serious: Yes (Death)
  Sender: TEVA
  Company Number: DE-TEVA-VS-3280682

PATIENT
  Age: 24 Year
  Sex: Male

DRUGS (3)
  1. GEMCITABINE [Suspect]
     Active Substance: GEMCITABINE
     Indication: Germ cell cancer metastatic
     Route: 065
  2. OXALIPLATIN [Suspect]
     Active Substance: OXALIPLATIN
     Indication: Germ cell cancer metastatic
     Route: 065
  3. PACLITAXEL [Suspect]
     Active Substance: PACLITAXEL
     Indication: Germ cell cancer metastatic
     Route: 065

REACTIONS (1)
  - Drug ineffective [Fatal]
